FAERS Safety Report 10075924 (Version 1)
Quarter: 2014Q1

REPORT INFORMATION
  Report Type: Spontaneous
  Country: US (occurrence: None)
  Receive Date: 20140321
  Receipt Date: 20140321
  Transmission Date: 20141002
  Serious: Yes (Other)
  Sender: FDA-Public Use
  Company Number: US-RRD-14-00007

PATIENT
  Sex: Male

DRUGS (1)
  1. DESOXYN [Suspect]
     Indication: ATTENTION DEFICIT/HYPERACTIVITY DISORDER
     Dosage: 5 MG, 2 IN 1 D
     Dates: start: 2013

REACTIONS (2)
  - Drug ineffective [None]
  - Incorrect dose administered [None]
